FAERS Safety Report 23183550 (Version 1)
Quarter: 2023Q4

REPORT INFORMATION
  Report Type: Spontaneous
  Country: US (occurrence: US)
  Receive Date: 20231114
  Receipt Date: 20231114
  Transmission Date: 20240110
  Serious: No
  Sender: FDA-Public Use
  Company Number: US-PFIZER INC-202101584908

PATIENT
  Age: 21 Year
  Sex: Female

DRUGS (3)
  1. XELJANZ XR [Suspect]
     Active Substance: TOFACITINIB CITRATE
     Indication: Osteoarthritis
     Dosage: 11 MG
     Dates: start: 20211112
  2. XELJANZ XR [Suspect]
     Active Substance: TOFACITINIB CITRATE
     Indication: Overlap syndrome
     Dosage: 11 MG
     Dates: start: 20211117
  3. XELJANZ XR [Suspect]
     Active Substance: TOFACITINIB CITRATE
     Indication: Rheumatoid arthritis
     Dosage: 1 TABLET EVERY DAY
     Route: 048

REACTIONS (4)
  - Panic attack [Unknown]
  - Fatigue [Unknown]
  - Pain [Unknown]
  - Arthralgia [Unknown]
